FAERS Safety Report 14256161 (Version 1)
Quarter: 2017Q4

REPORT INFORMATION
  Report Type: Report from Study
  Country: US (occurrence: US)
  Receive Date: 20171206
  Receipt Date: 20171206
  Transmission Date: 20180321
  Serious: Yes (Death, Hospitalization)
  Sender: FDA-Public Use
  Company Number: US-ACTELION-A-NJ2017-154449

PATIENT
  Age: 67 Year
  Sex: Female
  Weight: 102.49 kg

DRUGS (3)
  1. ADCIRCA [Concomitant]
     Active Substance: TADALAFIL
     Dosage: 40 MG, BID
     Dates: start: 20150318
  2. OPSUMIT [Suspect]
     Active Substance: MACITENTAN
     Indication: PULMONARY ARTERIAL HYPERTENSION
     Dosage: 10 MG, QD
     Route: 048
     Dates: start: 20160302, end: 20170906
  3. ORENITRAM [Suspect]
     Active Substance: TREPROSTINIL
     Indication: PRODUCT USED FOR UNKNOWN INDICATION
     Route: 065

REACTIONS (10)
  - Wheezing [Unknown]
  - Pulmonary hypertension [Not Recovered/Not Resolved]
  - Dyspnoea [Unknown]
  - Pneumonia [Unknown]
  - Unevaluable event [Unknown]
  - Death [Fatal]
  - Myopathy [Not Recovered/Not Resolved]
  - Anaemia [Unknown]
  - Secretion discharge [Unknown]
  - Headache [Unknown]

NARRATIVE: CASE EVENT DATE: 20170704
